FAERS Safety Report 6085860-3 (Version None)
Quarter: 2009Q1

REPORT INFORMATION
  Report Type: 
  Country: None (occurrence: None)
  Receive Date: 20090220
  Receipt Date: 20090212
  Transmission Date: 20090719
  Serious: Yes (Hospitalization, Disabling)
  Sender: FDA-Public Use
  Company Number: B0558964A

PATIENT
  Age: 74 Year
  Sex: Female
  Weight: 66 kg

DRUGS (16)
  1. CEFTAZIDIME [Suspect]
     Indication: OSTEOMYELITIS
     Route: 048
     Dates: start: 20071010, end: 20071107
  2. GENTAMICIN [Suspect]
     Indication: OSTEOMYELITIS
     Route: 042
     Dates: start: 20070919, end: 20071010
  3. FLUCLOXACILLIN [Concomitant]
     Indication: ARTERIAL DISORDER
     Dosage: 2000MG PER DAY
     Route: 048
     Dates: start: 20070620, end: 20070711
  4. CIPROFLOXACIN [Concomitant]
     Indication: ARTERIAL DISORDER
     Dosage: 1000MG PER DAY
     Dates: start: 20070620, end: 20070711
  5. ETODOLAC [Concomitant]
     Dosage: 600MG PER DAY
  6. ADALAT [Concomitant]
     Dosage: 40MG PER DAY
  7. CALCICHEW D3 [Concomitant]
  8. AMITRIPTYLINE [Concomitant]
     Dosage: 20MG PER DAY
  9. NAFTIDROFURYL OXALATE [Concomitant]
     Dosage: 300MG PER DAY
  10. CLOPIDOGREL [Concomitant]
     Dosage: 75MG PER DAY
  11. SIMVASTATIN [Concomitant]
     Dosage: 20MG PER DAY
  12. RALOXIFENE HCL [Concomitant]
     Dosage: 60MG PER DAY
  13. OMEPRAZOLE [Concomitant]
     Dosage: 40MG PER DAY
  14. LOPERAMIDE HCL [Concomitant]
     Dosage: 2MG PER DAY
  15. LEVOTHYROXINE SODIUM [Concomitant]
     Dosage: 100MCG PER DAY
  16. ASCORBIC ACID [Concomitant]
     Dosage: 500MG PER DAY

REACTIONS (1)
  - OTOTOXICITY [None]
